FAERS Safety Report 8587696-8 (Version None)
Quarter: 2012Q3

REPORT INFORMATION
  Report Type: 
  Country: None (occurrence: None)
  Receive Date: 20120813
  Receipt Date: 20120803
  Transmission Date: 20120928
  Serious: Yes (Other)
  Sender: FDA-Public Use
  Company Number: PHHY2012TW067110

PATIENT
  Age: 57 Year
  Sex: Female

DRUGS (3)
  1. PREDNISOLONE [Concomitant]
  2. CYCLOSPORINE [Suspect]
     Indication: SYSTEMIC LUPUS ERYTHEMATOSUS
  3. HYDROXYCHLOROQUINE SULFATE [Concomitant]

REACTIONS (11)
  - DYSPNOEA [None]
  - PLASMACYTOMA [None]
  - PNEUMONIA [None]
  - LYMPHADENOPATHY [None]
  - PYREXIA [None]
  - PANCYTOPENIA [None]
  - SPLENOMEGALY [None]
  - LYMPH NODE PALPABLE [None]
  - HEAVY CHAIN DISEASE [None]
  - HYPERHIDROSIS [None]
  - BLOOD CREATININE INCREASED [None]
